FAERS Safety Report 7198824-3 (Version None)
Quarter: 2010Q4

REPORT INFORMATION
  Report Type: 
  Country: None (occurrence: None)
  Receive Date: 20101227
  Receipt Date: 20101220
  Transmission Date: 20110411
  Serious: Yes (Other)
  Sender: FDA-Public Use
  Company Number: CA-JNJCH-2010029368

PATIENT
  Age: 64 Year
  Sex: Female
  Weight: 104.8 kg

DRUGS (1)
  1. REACTINE EXTRA STRENGTH [Suspect]
     Indication: HYPERSENSITIVITY
     Dosage: TEXT:1/2 TABLET ONE TO TWO TIMES PER DAY
     Route: 048
     Dates: start: 19950101, end: 20101217

REACTIONS (1)
  - HYPERTENSION [None]
